FAERS Safety Report 12771784 (Version 11)
Quarter: 2017Q1

REPORT INFORMATION
  Report Type: Report from Study
  Country: US (occurrence: US)
  Receive Date: 20160922
  Receipt Date: 20170124
  Transmission Date: 20170428
  Serious: Yes (Hospitalization, Other)
  Sender: FDA-Public Use
  Company Number: US-BAYER-2016-171634

PATIENT
  Age: 72 Year
  Sex: Female
  Weight: 86.17 kg

DRUGS (8)
  1. ADEMPAS [Suspect]
     Active Substance: RIOCIGUAT
     Indication: PULMONARY HYPERTENSION
     Dosage: UNK
     Route: 048
     Dates: start: 20160826
  2. AMLODIPINE [Concomitant]
     Active Substance: AMLODIPINE BESYLATE
     Dosage: UNK
  3. OPSUMIT [Concomitant]
     Active Substance: MACITENTAN
     Dosage: UNK
  4. ADEMPAS [Suspect]
     Active Substance: RIOCIGUAT
     Indication: PULMONARY HYPERTENSION
     Dosage: 2 MG, TID
     Dates: start: 20160826
  5. ADEMPAS [Suspect]
     Active Substance: RIOCIGUAT
     Indication: PULMONARY HYPERTENSION
     Dosage: 2.5 MG, TID
     Route: 048
  6. ADEMPAS [Suspect]
     Active Substance: RIOCIGUAT
     Indication: PULMONARY HYPERTENSION
     Dosage: 1.5 MG, TID
     Route: 048
  7. ADEMPAS [Suspect]
     Active Substance: RIOCIGUAT
     Indication: PULMONARY HYPERTENSION
     Dosage: 1 MG, TID
     Route: 048
  8. ADEMPAS [Suspect]
     Active Substance: RIOCIGUAT
     Indication: PULMONARY HYPERTENSION
     Dosage: 2.5 MG, TID
     Route: 048

REACTIONS (35)
  - Dyspnoea [None]
  - Hypotension [Unknown]
  - Back pain [None]
  - Weight decreased [Unknown]
  - Anaemia [Not Recovered/Not Resolved]
  - Blood pressure diastolic decreased [None]
  - Blood pressure diastolic decreased [Unknown]
  - Peripheral swelling [Unknown]
  - Kidney infection [None]
  - Chest pain [Unknown]
  - Oedema [None]
  - Oedema peripheral [Unknown]
  - Hypotension [Unknown]
  - Cough [Unknown]
  - Epistaxis [Unknown]
  - Diarrhoea [Unknown]
  - Feeling abnormal [None]
  - Chest discomfort [None]
  - Malaise [None]
  - Musculoskeletal chest pain [Unknown]
  - Asthenia [Unknown]
  - Anaemia [None]
  - Weight decreased [None]
  - Renal impairment [None]
  - Gout [None]
  - Nasopharyngitis [Unknown]
  - Dizziness [Unknown]
  - Joint swelling [Unknown]
  - Lung disorder [Unknown]
  - Pneumonia [Not Recovered/Not Resolved]
  - Deafness unilateral [Unknown]
  - Polyuria [None]
  - Heart rate increased [None]
  - Nausea [Unknown]
  - Malaise [Unknown]

NARRATIVE: CASE EVENT DATE: 20160831
